FAERS Safety Report 15876692 (Version 1)
Quarter: 2019Q1

REPORT INFORMATION
  Report Type: Spontaneous
  Country: US (occurrence: US)
  Receive Date: 20190127
  Receipt Date: 20190127
  Transmission Date: 20190417
  Serious: No
  Sender: FDA-Public Use
  Company Number: US-JNJFOC-20181235857

PATIENT
  Sex: Male
  Weight: 83.92 kg

DRUGS (2)
  1. MENS ROGAINE EXTRA STRENGTH [Suspect]
     Active Substance: MINOXIDIL
     Indication: ALOPECIA
     Dosage: LESS THAN 1/2 CAP ALONG THE HAIRLINE 1 DAILY
     Route: 061
  2. MENS ROGAINE EXTRA STRENGTH [Suspect]
     Active Substance: MINOXIDIL
     Indication: ALOPECIA
     Dosage: (LITTLE BIT) LESS THAN 1/2 CAP ALONG THE HAIRLINE TWICE DAILY
     Route: 061

REACTIONS (4)
  - Blood pressure decreased [Unknown]
  - Product administered at inappropriate site [Unknown]
  - Underdose [Unknown]
  - Dizziness [Recovering/Resolving]
